FAERS Safety Report 6050070-2 (Version None)
Quarter: 2009Q1

REPORT INFORMATION
  Report Type: 
  Country: None (occurrence: None)
  Receive Date: 20090121
  Receipt Date: 20090108
  Transmission Date: 20090719
  Serious: Yes (Hospitalization)
  Sender: FDA-Public Use
  Company Number: JPI-P-005054

PATIENT
  Age: 58 Year
  Sex: Female
  Weight: 53.978 kg

DRUGS (10)
  1. XYREM [Suspect]
     Indication: NARCOLEPSY
     Dosage: SEE IMAGE
     Route: 048
     Dates: start: 20080101, end: 20080101
  2. XYREM [Suspect]
     Indication: NARCOLEPSY
     Dosage: SEE IMAGE
     Route: 048
     Dates: start: 20090105, end: 20090105
  3. XYREM [Suspect]
     Indication: NARCOLEPSY
     Dosage: SEE IMAGE
     Route: 048
     Dates: start: 20080827
  4. XYREM [Suspect]
     Indication: NARCOLEPSY
     Dosage: SEE IMAGE
     Route: 048
     Dates: start: 20080901
  5. XYREM [Suspect]
     Indication: NARCOLEPSY
     Dosage: SEE IMAGE
     Route: 048
     Dates: start: 20080902
  6. XYREM [Suspect]
     Indication: NARCOLEPSY
     Dosage: SEE IMAGE
     Route: 048
     Dates: start: 20081201
  7. XYREM [Suspect]
     Indication: NARCOLEPSY
     Dosage: SEE IMAGE
     Route: 048
     Dates: start: 20081201
  8. TRIAZOLAM [Concomitant]
  9. UNSPECIFIED THYROID MEDICATION [Concomitant]
  10. EZETIMIBE AND SIMVASTATIN [Concomitant]

REACTIONS (18)
  - BLOOD POTASSIUM DECREASED [None]
  - CANDIDIASIS [None]
  - CHOKING [None]
  - CONSTIPATION [None]
  - CONTUSION [None]
  - DECREASED APPETITE [None]
  - DEHYDRATION [None]
  - DIZZINESS [None]
  - DRUG INEFFECTIVE [None]
  - DRY MOUTH [None]
  - DYSGEUSIA [None]
  - HYPOPHAGIA [None]
  - NAUSEA [None]
  - NIGHT SWEATS [None]
  - URINARY INCONTINENCE [None]
  - VERTIGO [None]
  - VOMITING [None]
  - VULVOVAGINAL DRYNESS [None]
